FAERS Safety Report 20110640 (Version 1)
Quarter: 2021Q4

REPORT INFORMATION
  Report Type: Spontaneous
  Country: US (occurrence: None)
  Receive Date: 20211124
  Receipt Date: 20211124
  Transmission Date: 20220304
  Serious: No
  Sender: FDA-Public Use
  Company Number: None

PATIENT
  Age: 28 Year
  Sex: Female
  Weight: 102.15 kg

DRUGS (1)
  1. CASIRIVIMAB\IMDEVIMAB [Suspect]
     Active Substance: CASIRIVIMAB\IMDEVIMAB
     Indication: SARS-CoV-2 test positive
     Dosage: FREQUENCY : ONCE;?
     Route: 041

REACTIONS (5)
  - Flushing [None]
  - Infusion related reaction [None]
  - Blood pressure increased [None]
  - Respiratory tract oedema [None]
  - Erythema [None]

NARRATIVE: CASE EVENT DATE: 20211124
